FAERS Safety Report 6999649-1 (Version None)
Quarter: 2010Q3

REPORT INFORMATION
  Report Type: 
  Country: None (occurrence: None)
  Receive Date: 20100920
  Receipt Date: 20100517
  Transmission Date: 20110219
  Serious: No
  Sender: FDA-Public Use
  Company Number: US-ASTRAZENECA-2010SE22688

PATIENT
  Age: 35 Year
  Sex: Male

DRUGS (2)
  1. SEROQUEL XR [Suspect]
     Indication: GENERALISED ANXIETY DISORDER
     Route: 048
  2. SEROQUEL XR [Suspect]
     Indication: DEPRESSIVE SYMPTOM
     Route: 048

REACTIONS (4)
  - ANXIETY [None]
  - HYPERTENSION [None]
  - OEDEMA PERIPHERAL [None]
  - PAIN IN EXTREMITY [None]
